FAERS Safety Report 13059386 (Version 3)
Quarter: 2019Q1

REPORT INFORMATION
  Report Type: Spontaneous
  Country: HU (occurrence: HU)
  Receive Date: 20161223
  Receipt Date: 20190121
  Transmission Date: 20190417
  Serious: Yes (Other)
  Sender: FDA-Public Use
  Company Number: PHHY2016HU166805

PATIENT
  Age: 48 Year
  Sex: Female

DRUGS (25)
  1. 5-FLUOROURACIL [Suspect]
     Active Substance: FLUOROURACIL
     Indication: OVARIAN EPITHELIAL CANCER METASTATIC
     Dosage: UNK (11 CYCLES)
     Route: 065
     Dates: start: 201310
  2. MEDROXYPROGESTERONE [Suspect]
     Active Substance: MEDROXYPROGESTERONE
     Indication: OVARIAN EPITHELIAL CANCER METASTATIC
     Route: 065
  3. FOLINIC ACID [Suspect]
     Active Substance: LEUCOVORIN
     Indication: OVARIAN CANCER STAGE IV
     Dosage: UNK (11 CYCLES)
     Route: 065
  4. BEVACIZUMAB. [Suspect]
     Active Substance: BEVACIZUMAB
     Indication: OVARIAN CANCER STAGE IV
  5. OXALIPLATIN. [Suspect]
     Active Substance: OXALIPLATIN
     Indication: OVARIAN EPITHELIAL CANCER METASTATIC
     Dosage: UNK
     Route: 065
  6. VEPESID [Suspect]
     Active Substance: ETOPOSIDE
     Indication: OVARIAN EPITHELIAL CANCER METASTATIC
     Dosage: UNK
     Route: 065
  7. VEPESID [Suspect]
     Active Substance: ETOPOSIDE
     Indication: OVARIAN CANCER STAGE IV
  8. EPIRUBICIN [Suspect]
     Active Substance: EPIRUBICIN
     Indication: OVARIAN EPITHELIAL CANCER METASTATIC
     Route: 065
  9. 5-FLUOROURACIL [Suspect]
     Active Substance: FLUOROURACIL
     Indication: OVARIAN CANCER
  10. FOLINIC ACID [Suspect]
     Active Substance: LEUCOVORIN
     Indication: OVARIAN CANCER
  11. CISPLATIN. [Suspect]
     Active Substance: CISPLATIN
     Indication: OVARIAN CANCER STAGE IV
  12. TAXOL [Suspect]
     Active Substance: PACLITAXEL
     Indication: OVARIAN EPITHELIAL CANCER METASTATIC
     Route: 065
  13. VEPESID [Suspect]
     Active Substance: ETOPOSIDE
     Indication: OVARIAN CANCER
  14. BEVACIZUMAB. [Suspect]
     Active Substance: BEVACIZUMAB
     Indication: OVARIAN EPITHELIAL CANCER METASTATIC
     Dosage: UNK
     Route: 065
  15. CAELYX [Concomitant]
     Active Substance: DOXORUBICIN HYDROCHLORIDE
     Indication: OVARIAN EPITHELIAL CANCER METASTATIC
     Route: 065
  16. OXALIPLATIN. [Suspect]
     Active Substance: OXALIPLATIN
     Indication: OVARIAN CANCER
  17. LEUCOVORIN CALCIUM. [Suspect]
     Active Substance: LEUCOVORIN CALCIUM
     Indication: OVARIAN CANCER STAGE IV
     Dosage: UNK
     Route: 065
  18. IFOSFAMIDE. [Suspect]
     Active Substance: IFOSFAMIDE
     Indication: OVARIAN CANCER STAGE IV
  19. CYCLOPHOSPHAMIDE. [Suspect]
     Active Substance: CYCLOPHOSPHAMIDE
     Indication: OVARIAN EPITHELIAL CANCER METASTATIC
     Route: 065
  20. CISPLATIN. [Suspect]
     Active Substance: CISPLATIN
     Indication: OVARIAN EPITHELIAL CANCER METASTATIC
     Dosage: UNK
     Route: 065
  21. HYCAMTIN [Suspect]
     Active Substance: TOPOTECAN HYDROCHLORIDE
     Indication: OVARIAN EPITHELIAL CANCER METASTATIC
     Route: 065
  22. IFOSFAMIDE. [Suspect]
     Active Substance: IFOSFAMIDE
     Indication: OVARIAN EPITHELIAL CANCER METASTATIC
     Dosage: UNK (6 CYCLES)
     Route: 065
  23. CARBOPLATIN. [Suspect]
     Active Substance: CARBOPLATIN
     Indication: OVARIAN EPITHELIAL CANCER METASTATIC
     Route: 065
  24. CALCIUM FOLINATE [Suspect]
     Active Substance: LEUCOVORIN CALCIUM
     Indication: OVARIAN EPITHELIAL CANCER METASTATIC
     Dosage: UNK (11 CYCLES)
     Route: 065
  25. GEMZAR [Suspect]
     Active Substance: GEMCITABINE HYDROCHLORIDE
     Indication: OVARIAN EPITHELIAL CANCER METASTATIC
     Route: 065

REACTIONS (22)
  - Ovarian cancer metastatic [Unknown]
  - Drug effect incomplete [Unknown]
  - Polyneuropathy [Unknown]
  - Fatigue [Unknown]
  - Platelet count decreased [Unknown]
  - Neutropenia [Recovered/Resolved]
  - Thrombocytopenia [Recovered/Resolved]
  - Metastases to lymph nodes [Unknown]
  - Thrombocytopenic purpura [Unknown]
  - Neuropathy peripheral [Unknown]
  - Diarrhoea [Unknown]
  - Abdominal pain [Unknown]
  - Neuralgia [Unknown]
  - Malaise [Unknown]
  - Haemoglobin decreased [Recovered/Resolved]
  - Asthenia [Unknown]
  - Off label use [Unknown]
  - Feeling abnormal [Unknown]
  - Disease progression [Unknown]
  - White blood cell count decreased [Unknown]
  - Nausea [Unknown]
  - Vomiting [Unknown]

NARRATIVE: CASE EVENT DATE: 2012
